FAERS Safety Report 5918595-5 (Version None)
Quarter: 2008Q4

REPORT INFORMATION
  Report Type: 
  Country: None (occurrence: None)
  Receive Date: 20081014
  Receipt Date: 20081014
  Transmission Date: 20090506
  Serious: Yes (Other)
  Sender: FDA-Public Use
  Company Number: None

PATIENT
  Age: 37 Year
  Sex: Female
  Weight: 58.9676 kg

DRUGS (1)
  1. EFFEXOR XR [Suspect]
     Indication: DEPRESSION
     Dosage: 150 MG DAILY PO
     Route: 048
     Dates: start: 20050401, end: 20080701

REACTIONS (10)
  - DIZZINESS [None]
  - DRUG EXPOSURE DURING PREGNANCY [None]
  - DRUG WITHDRAWAL SYNDROME [None]
  - FALL [None]
  - FEELING ABNORMAL [None]
  - NAUSEA [None]
  - PARAESTHESIA [None]
  - PREGNANCY [None]
  - SUICIDAL IDEATION [None]
  - VOMITING [None]
